FAERS Safety Report 9797614 (Version 2)
Quarter: 2014Q1

REPORT INFORMATION
  Report Type: Report from Study
  Country: DE (occurrence: DE)
  Receive Date: 20140106
  Receipt Date: 20140115
  Transmission Date: 20141002
  Serious: Yes (Death)
  Sender: FDA-Public Use
  Company Number: DE-BEH-2013039739

PATIENT
  Age: 83 Year
  Sex: Female
  Weight: 51 kg

DRUGS (9)
  1. PRIVIGEN [Suspect]
     Dates: start: 20130121, end: 20130121
  2. PRIVIGEN [Suspect]
     Indication: CHRONIC LYMPHOCYTIC LEUKAEMIA
     Dates: start: 20130218, end: 20130218
  3. TAVEGIL [Concomitant]
     Route: 042
     Dates: start: 20130218
  4. TAVEGIL [Concomitant]
     Indication: PREMEDICATION
     Route: 042
     Dates: start: 20130121
  5. TORASEMIDE [Concomitant]
  6. CANDESARTAN [Concomitant]
  7. L-THYROX [Concomitant]
  8. SPIRONOLACTON [Concomitant]
  9. ACC [Concomitant]

REACTIONS (2)
  - Chronic lymphocytic leukaemia [Fatal]
  - Cardiac failure [Fatal]
